FAERS Safety Report 20363888 (Version 1)
Quarter: 2022Q1

REPORT INFORMATION
  Report Type: Report from Study
  Country: ES (occurrence: None)
  Receive Date: 20220121
  Receipt Date: 20220121
  Transmission Date: 20220423
  Serious: Yes (Hospitalization)
  Sender: FDA-Public Use
  Company Number: 2021A908586

PATIENT
  Age: 30923 Day
  Sex: Male

DRUGS (69)
  1. DURVALUMAB [Suspect]
     Active Substance: DURVALUMAB
     Indication: Transitional cell carcinoma
     Route: 042
     Dates: start: 20191114, end: 20191114
  2. DURVALUMAB [Suspect]
     Active Substance: DURVALUMAB
     Indication: Transitional cell carcinoma
     Route: 042
     Dates: start: 20191212, end: 20191212
  3. DURVALUMAB [Suspect]
     Active Substance: DURVALUMAB
     Indication: Transitional cell carcinoma
     Route: 042
     Dates: start: 20200103, end: 20200103
  4. DURVALUMAB [Suspect]
     Active Substance: DURVALUMAB
     Indication: Transitional cell carcinoma
     Route: 042
     Dates: start: 20200129, end: 20200129
  5. DURVALUMAB [Suspect]
     Active Substance: DURVALUMAB
     Indication: Transitional cell carcinoma
     Route: 042
     Dates: start: 20200226, end: 20200226
  6. DURVALUMAB [Suspect]
     Active Substance: DURVALUMAB
     Indication: Transitional cell carcinoma
     Route: 042
     Dates: start: 20200325, end: 20200325
  7. DURVALUMAB [Suspect]
     Active Substance: DURVALUMAB
     Indication: Transitional cell carcinoma
     Route: 042
     Dates: start: 20200422, end: 20200422
  8. DURVALUMAB [Suspect]
     Active Substance: DURVALUMAB
     Indication: Transitional cell carcinoma
     Route: 042
     Dates: start: 20200520, end: 20200520
  9. DURVALUMAB [Suspect]
     Active Substance: DURVALUMAB
     Indication: Transitional cell carcinoma
     Route: 042
     Dates: start: 20200617, end: 20200617
  10. DURVALUMAB [Suspect]
     Active Substance: DURVALUMAB
     Indication: Transitional cell carcinoma
     Route: 042
     Dates: start: 20200715, end: 20200715
  11. DURVALUMAB [Suspect]
     Active Substance: DURVALUMAB
     Indication: Transitional cell carcinoma
     Route: 042
     Dates: start: 20200811, end: 20200811
  12. DURVALUMAB [Suspect]
     Active Substance: DURVALUMAB
     Indication: Transitional cell carcinoma
     Route: 042
     Dates: start: 20200909, end: 20200909
  13. DURVALUMAB [Suspect]
     Active Substance: DURVALUMAB
     Indication: Transitional cell carcinoma
     Route: 042
     Dates: start: 20201007, end: 20201007
  14. DURVALUMAB [Suspect]
     Active Substance: DURVALUMAB
     Indication: Transitional cell carcinoma
     Route: 042
     Dates: start: 20201103, end: 20201103
  15. DURVALUMAB [Suspect]
     Active Substance: DURVALUMAB
     Indication: Transitional cell carcinoma
     Route: 042
     Dates: start: 20201203, end: 20201203
  16. DURVALUMAB [Suspect]
     Active Substance: DURVALUMAB
     Indication: Transitional cell carcinoma
     Route: 042
     Dates: start: 20201230, end: 20201230
  17. DURVALUMAB [Suspect]
     Active Substance: DURVALUMAB
     Indication: Transitional cell carcinoma
     Route: 042
     Dates: start: 20210128, end: 20210128
  18. DURVALUMAB [Suspect]
     Active Substance: DURVALUMAB
     Indication: Transitional cell carcinoma
     Route: 042
     Dates: start: 20210224, end: 20210224
  19. DURVALUMAB [Suspect]
     Active Substance: DURVALUMAB
     Indication: Transitional cell carcinoma
     Route: 042
     Dates: start: 20210325, end: 20210325
  20. DURVALUMAB [Suspect]
     Active Substance: DURVALUMAB
     Indication: Transitional cell carcinoma
     Route: 042
     Dates: start: 20210602, end: 20210602
  21. DURVALUMAB [Suspect]
     Active Substance: DURVALUMAB
     Indication: Transitional cell carcinoma
     Route: 042
     Dates: start: 20210701, end: 20210701
  22. DURVALUMAB [Suspect]
     Active Substance: DURVALUMAB
     Indication: Transitional cell carcinoma
     Route: 042
     Dates: start: 20210730, end: 20210730
  23. DURVALUMAB [Suspect]
     Active Substance: DURVALUMAB
     Indication: Transitional cell carcinoma
     Route: 042
     Dates: start: 20210903, end: 20210903
  24. DURVALUMAB [Suspect]
     Active Substance: DURVALUMAB
     Indication: Transitional cell carcinoma
     Route: 042
     Dates: start: 20210929, end: 20210929
  25. DURVALUMAB [Suspect]
     Active Substance: DURVALUMAB
     Indication: Transitional cell carcinoma
     Route: 042
     Dates: start: 20211027, end: 20211027
  26. DURVALUMAB [Suspect]
     Active Substance: DURVALUMAB
     Indication: Transitional cell carcinoma
     Route: 042
     Dates: start: 20190801, end: 20190801
  27. DURVALUMAB [Suspect]
     Active Substance: DURVALUMAB
     Indication: Transitional cell carcinoma
     Route: 042
     Dates: start: 20190905, end: 20190905
  28. DURVALUMAB [Suspect]
     Active Substance: DURVALUMAB
     Indication: Transitional cell carcinoma
     Route: 042
     Dates: start: 20190926, end: 20190926
  29. DURVALUMAB [Suspect]
     Active Substance: DURVALUMAB
     Indication: Transitional cell carcinoma
     Route: 042
     Dates: start: 20191024, end: 20191024
  30. TREMELIMUMAB [Suspect]
     Active Substance: TREMELIMUMAB
     Indication: Transitional cell carcinoma
     Route: 042
     Dates: start: 20190801, end: 20190801
  31. TREMELIMUMAB [Suspect]
     Active Substance: TREMELIMUMAB
     Indication: Transitional cell carcinoma
     Route: 042
     Dates: start: 20190905, end: 20190905
  32. TREMELIMUMAB [Suspect]
     Active Substance: TREMELIMUMAB
     Indication: Transitional cell carcinoma
     Route: 042
     Dates: start: 20190926, end: 20190926
  33. TREMELIMUMAB [Suspect]
     Active Substance: TREMELIMUMAB
     Indication: Transitional cell carcinoma
     Route: 042
     Dates: start: 20191024, end: 20191024
  34. GEMCITABINE [Suspect]
     Active Substance: GEMCITABINE
     Indication: Transitional cell carcinoma
     Dosage: 1000.0 MG/M2 1000 MG/M2 ON DAYS 1 AND 8 OF EVERY 3 WEEK CYCLE FOR 6 CYCLES
     Route: 042
     Dates: start: 20190801, end: 20190801
  35. GEMCITABINE [Suspect]
     Active Substance: GEMCITABINE
     Indication: Transitional cell carcinoma
     Dosage: 1000.0 MG/M2 1000 MG/M2 ON DAYS 1 AND 8 OF EVERY 3 WEEK CYCLE FOR 6 CYCLES
     Route: 042
     Dates: start: 20190808, end: 20190808
  36. GEMCITABINE [Suspect]
     Active Substance: GEMCITABINE
     Indication: Transitional cell carcinoma
     Dosage: 1000.0 MG/M2 1000 MG/M2 ON DAYS 1 AND 8 OF EVERY 3 WEEK CYCLE FOR 6 CYCLES
     Route: 042
     Dates: start: 20190905, end: 20190905
  37. GEMCITABINE [Suspect]
     Active Substance: GEMCITABINE
     Indication: Transitional cell carcinoma
     Dosage: 1000.0 MG/M2 1000 MG/M2 ON DAYS 1 AND 8 OF EVERY 3 WEEK CYCLE FOR 6 CYCLES
     Route: 042
     Dates: start: 20190926, end: 20190926
  38. GEMCITABINE [Suspect]
     Active Substance: GEMCITABINE
     Indication: Transitional cell carcinoma
     Dosage: 1000.0 MG/M2 1000 MG/M2 ON DAYS 1 AND 8 OF EVERY 3 WEEK CYCLE FOR 6 CYCLES
     Route: 042
     Dates: start: 20191024, end: 20191024
  39. GEMCITABINE [Suspect]
     Active Substance: GEMCITABINE
     Indication: Transitional cell carcinoma
     Dosage: 1980.0 MG/M2 1000 MG/M2 ON DAYS 1 AND 8 OF EVERY 3 WEEK CYCLE FOR 6 CYCLES
     Route: 042
     Dates: start: 20191114, end: 20191114
  40. GEMCITABINE [Suspect]
     Active Substance: GEMCITABINE
     Indication: Transitional cell carcinoma
     Dosage: 1980.0 MG/M2 1000 MG/M2 ON DAYS 1 AND 8 OF EVERY 3 WEEK CYCLE FOR 6 CYCLES
     Route: 042
     Dates: start: 20191212, end: 20191212
  41. CARBOPLATIN [Suspect]
     Active Substance: CARBOPLATIN
     Indication: Transitional cell carcinoma
     Dosage: 4.0 AUC
     Route: 042
     Dates: start: 20190801, end: 20190801
  42. CARBOPLATIN [Suspect]
     Active Substance: CARBOPLATIN
     Indication: Transitional cell carcinoma
     Dosage: 4.0 AUC
     Route: 042
     Dates: start: 20190905, end: 20190905
  43. CARBOPLATIN [Suspect]
     Active Substance: CARBOPLATIN
     Indication: Transitional cell carcinoma
     Dosage: 4.0 AUC
     Route: 042
     Dates: start: 20190926, end: 20190926
  44. CARBOPLATIN [Suspect]
     Active Substance: CARBOPLATIN
     Indication: Transitional cell carcinoma
     Dosage: 4.5 AUC
     Route: 042
     Dates: start: 20191024, end: 20191024
  45. CARBOPLATIN [Suspect]
     Active Substance: CARBOPLATIN
     Indication: Transitional cell carcinoma
     Dosage: 4.0 AUC
     Route: 042
     Dates: start: 20191114, end: 20191114
  46. CARBOPLATIN [Suspect]
     Active Substance: CARBOPLATIN
     Indication: Transitional cell carcinoma
     Dosage: 4.0 AUC
     Route: 042
     Dates: start: 20191212, end: 20191212
  47. ALLOPURINOL [Concomitant]
     Active Substance: ALLOPURINOL
     Indication: Hyperuricaemia
     Route: 048
     Dates: start: 201704
  48. BUDESONIDE [Concomitant]
     Active Substance: BUDESONIDE
     Indication: Respiratory depression
     Dosage: 2.00 INHALATIONS TWO TIMES A DAY
     Route: 045
  49. LORMETAZEPAM [Concomitant]
     Active Substance: LORMETAZEPAM
     Indication: Insomnia
     Route: 048
  50. LOSARTAN HIDROCLOROTIAZIDE (100 MG/12.5 MG) [Concomitant]
     Indication: Hypertension
     Route: 048
  51. ACETAMINOPHEN [Concomitant]
     Active Substance: ACETAMINOPHEN
     Indication: Pelvic pain
     Route: 048
     Dates: end: 20211230
  52. ACETAMINOPHEN [Concomitant]
     Active Substance: ACETAMINOPHEN
     Indication: Pyrexia
     Route: 048
     Dates: end: 20211230
  53. ACETAMINOPHEN [Concomitant]
     Active Substance: ACETAMINOPHEN
     Indication: Pneumonitis
     Route: 048
     Dates: end: 20211230
  54. SIMVASTATIN [Concomitant]
     Active Substance: SIMVASTATIN
     Indication: Dyslipidaemia
     Route: 048
     Dates: end: 20211228
  55. LEVOTHYROXINE [Concomitant]
     Active Substance: LEVOTHYROXINE
     Indication: Hypothyroidism
     Dosage: 75UG/INHAL EVERY DAY
     Route: 048
     Dates: start: 20210506, end: 20220104
  56. CETIRIZINE [Concomitant]
     Active Substance: CETIRIZINE HYDROCHLORIDE
     Indication: Rash pruritic
     Dosage: 10.0MG AS REQUIRED
     Route: 048
     Dates: start: 20211112
  57. CETIRIZINE [Concomitant]
     Active Substance: CETIRIZINE HYDROCHLORIDE
     Indication: Lichenoid keratosis
     Dosage: 10.0MG AS REQUIRED
     Route: 048
     Dates: start: 20211112
  58. CETIRIZINE [Concomitant]
     Active Substance: CETIRIZINE HYDROCHLORIDE
     Indication: Pemphigoid
     Dosage: 10.0MG AS REQUIRED
     Route: 048
     Dates: start: 20211112
  59. CETIRIZINE [Concomitant]
     Active Substance: CETIRIZINE HYDROCHLORIDE
     Indication: Pruritus
     Dosage: 10.0MG AS REQUIRED
     Route: 048
     Dates: start: 20211112
  60. TRIAMCINOLONE ACETONIDE [Concomitant]
     Active Substance: TRIAMCINOLONE ACETONIDE
     Indication: Lichenoid keratosis
     Dosage: 1.00 APPLICATION EVERY OTHER DAY
     Route: 061
     Dates: start: 20210630, end: 202109
  61. TRIAMCINOLONE ACETONIDE [Concomitant]
     Active Substance: TRIAMCINOLONE ACETONIDE
     Indication: Pemphigoid
     Dosage: 1.00 APPLICATION EVERY OTHER DAY
     Route: 061
     Dates: start: 20210630, end: 202109
  62. PREDNISONE [Concomitant]
     Active Substance: PREDNISONE
     Indication: Pemphigoid
     Route: 048
     Dates: start: 20211111, end: 20211129
  63. PREDNISONE [Concomitant]
     Active Substance: PREDNISONE
     Indication: Pemphigoid
     Route: 048
     Dates: start: 20211130, end: 20211215
  64. CLOVATE (CLOBETASOL PROPIONATE) [Concomitant]
     Indication: Pemphigoid
     Route: 061
     Dates: start: 20211111
  65. ATORVASTATIN [Concomitant]
     Active Substance: ATORVASTATIN
     Indication: Dyslipidaemia
     Route: 048
     Dates: start: 20211229, end: 20220103
  66. OMEPRAZOLE [Concomitant]
     Active Substance: OMEPRAZOLE
     Indication: Prophylaxis
     Route: 048
     Dates: start: 20211229
  67. CLOVATE [Concomitant]
     Indication: Pemphigoid
     Dosage: 30.00 G QD
     Dates: start: 20211111
  68. LOSARTAN HIDROCLOROTIAZIDE [Concomitant]
     Indication: Hypertension
     Dosage: 1.00 DF QD
  69. SIMVASTATIN [Concomitant]
     Active Substance: SIMVASTATIN
     Indication: Dyslipidaemia
     Dosage: 20.00 MG QD

REACTIONS (1)
  - Immune-mediated lung disease [Recovered/Resolved]

NARRATIVE: CASE EVENT DATE: 20211229
